FAERS Safety Report 19402979 (Version 1)
Quarter: 2021Q2

REPORT INFORMATION
  Report Type: Spontaneous
  Country: US (occurrence: US)
  Receive Date: 20210610
  Receipt Date: 20210610
  Transmission Date: 20210717
  Serious: Yes (Hospitalization)
  Sender: FDA-Public Use
  Company Number: US-CELGENEUS-USA-20210602067

PATIENT
  Age: 75 Year
  Sex: Female
  Weight: 95.34 kg

DRUGS (3)
  1. ANTIBIOTICS [Concomitant]
     Active Substance: UNSPECIFIED INGREDIENT
     Indication: INFECTION
     Route: 065
  2. REVLIMID [Suspect]
     Active Substance: LENALIDOMIDE
     Indication: B-CELL SMALL LYMPHOCYTIC LYMPHOMA
     Dosage: 10 MILLIGRAM
     Route: 048
     Dates: start: 202102, end: 20210601
  3. REVLIMID [Suspect]
     Active Substance: LENALIDOMIDE
     Dosage: 10 MILLIGRAM
     Route: 048
     Dates: start: 20210603

REACTIONS (1)
  - Infection [Unknown]

NARRATIVE: CASE EVENT DATE: 20210601
